FAERS Safety Report 15629513 (Version 1)
Quarter: 2018Q4

REPORT INFORMATION
  Report Type: Spontaneous
  Country: US (occurrence: US)
  Receive Date: 20181117
  Receipt Date: 20181117
  Transmission Date: 20190205
  Serious: No
  Sender: FDA-Public Use
  Company Number: US-009507513-1811USA002309

PATIENT
  Age: 76 Year
  Sex: Female
  Weight: 78.9 kg

DRUGS (28)
  1. CARBIDOPA (+) LEVODOPA [Suspect]
     Active Substance: CARBIDOPA\LEVODOPA
     Dosage: UNK(6X/DAY)
  2. CARBIDOPA (+) LEVODOPA [Suspect]
     Active Substance: CARBIDOPA\LEVODOPA
     Dosage: AT NIGHT
  3. AMANTADINE. [Suspect]
     Active Substance: AMANTADINE HYDROCHLORIDE
     Dosage: 137 MILLIGRAM, QD(1X)BEDTIME
     Dates: start: 20180807
  4. CEFDINIR. [Concomitant]
     Active Substance: CEFDINIR
  5. FLUOROURACIL. [Concomitant]
     Active Substance: FLUOROURACIL
  6. NOVO-METOPROL [Concomitant]
     Active Substance: METOPROLOL TARTRATE
  7. HYDROCHLOROTHIAZIDE. [Concomitant]
     Active Substance: HYDROCHLOROTHIAZIDE
  8. ERGOCALCIFEROL. [Concomitant]
     Active Substance: ERGOCALCIFEROL
  9. AMANTADINE. [Suspect]
     Active Substance: AMANTADINE HYDROCHLORIDE
     Indication: DYSKINESIA
     Dosage: 137 MILLIGRAM, QD
     Route: 048
     Dates: start: 201807, end: 201808
  10. AMANTADINE. [Suspect]
     Active Substance: AMANTADINE HYDROCHLORIDE
     Dosage: 274 MILLIGRAM QD AT BEDTIME
     Route: 048
     Dates: start: 201808, end: 20180805
  11. PROBIOTICS (UNSPECIFIED) [Concomitant]
     Active Substance: PROBIOTICS NOS
  12. CITALOPRAM [Concomitant]
     Active Substance: CITALOPRAM HYDROBROMIDE
  13. LOSARTAN. [Concomitant]
     Active Substance: LOSARTAN
  14. ALPRAZOLAM. [Concomitant]
     Active Substance: ALPRAZOLAM
  15. DOXYCYCLINE HYCLATE. [Concomitant]
     Active Substance: DOXYCYCLINE HYCLATE
  16. AMANTADINE. [Suspect]
     Active Substance: AMANTADINE HYDROCHLORIDE
     Dosage: 137 MILLIGRAM, QD(2X)
     Dates: start: 20180806, end: 20180806
  17. TOPROL XL [Concomitant]
     Active Substance: METOPROLOL SUCCINATE
  18. AMANTADINE. [Concomitant]
     Active Substance: AMANTADINE HYDROCHLORIDE
  19. HYDROCHLOROT [Concomitant]
     Active Substance: HYDROCHLOROTHIAZIDE
  20. GENTEAL LUBRICANT EYE GEL DROPS [Concomitant]
  21. NITROFURANTOIN. [Concomitant]
     Active Substance: NITROFURANTOIN
  22. DUREZOL [Concomitant]
     Active Substance: DIFLUPREDNATE
  23. POTASSIUM (UNSPECIFIED) [Concomitant]
     Active Substance: POTASSIUM
  24. MELATONIN [Concomitant]
     Active Substance: MELATONIN
     Dosage: UNK
     Dates: end: 2018
  25. MELOXICAM. [Concomitant]
     Active Substance: MELOXICAM
  26. AMANTADINE. [Suspect]
     Active Substance: AMANTADINE HYDROCHLORIDE
     Dosage: 137 MILLIGRAM, QD
     Route: 048
     Dates: start: 2018
  27. UBIDECARENONE [Concomitant]
     Active Substance: UBIDECARENONE
  28. LORAZEPAM. [Concomitant]
     Active Substance: LORAZEPAM

REACTIONS (11)
  - Tachycardia [Unknown]
  - Drug effect incomplete [Unknown]
  - Dyskinesia [Unknown]
  - Dystonia [Unknown]
  - Balance disorder [Unknown]
  - Headache [Unknown]
  - Hyperhidrosis [Unknown]
  - Anxiety [Unknown]
  - Dry mouth [Unknown]
  - Peripheral swelling [Unknown]
  - Dizziness [Unknown]

NARRATIVE: CASE EVENT DATE: 2018
